FAERS Safety Report 9376308 (Version 2)
Quarter: 2013Q3

REPORT INFORMATION
  Report Type: Spontaneous
  Country: US (occurrence: US)
  Receive Date: 20130701
  Receipt Date: 20130823
  Transmission Date: 20140515
  Serious: No
  Sender: FDA-Public Use
  Company Number: US-009507513-1306USA013276

PATIENT
  Age: 45 Year
  Sex: Female

DRUGS (2)
  1. ASMANEX TWISTHALER [Suspect]
     Indication: ASTHMA
     Dosage: ONE PUFF IN THE MORNING AND TWO PUFFS AT THE NIGHT, AEROSOL(EA) 220
     Route: 048
  2. SINGULAIR [Concomitant]

REACTIONS (4)
  - Asthma [Recovered/Resolved]
  - Drug dose omission [Unknown]
  - Product quality issue [Unknown]
  - Blood cortisol decreased [Unknown]
